FAERS Safety Report 5084876-3 (Version None)
Quarter: 2006Q3

REPORT INFORMATION
  Report Type: 
  Country: None (occurrence: None)
  Receive Date: 20060815
  Receipt Date: 20060803
  Transmission Date: 20061208
  Serious: Yes (Death)
  Sender: FDA-Public Use
  Company Number: 2006-01630

PATIENT
  Age: 69 Year
  Sex: Male
  Weight: 76 kg

DRUGS (8)
  1. VELCADE [Suspect]
     Indication: MULTIPLE MYELOMA
     Dosage: 1.30 MG/M2, INTRAVENOUS
     Route: 042
     Dates: start: 20040405, end: 20040802
  2. BENDAMUSTINE(BENDAMUSTINE) [Suspect]
     Dates: start: 20040901, end: 20050101
  3. MELPHALAN(MELPHALAN) [Suspect]
     Dates: start: 20050401
  4. DEXAMETHASONE [Concomitant]
  5. LEVOFLOXACIN [Concomitant]
  6. PANTOZOL (PANTOPRAZOLE SODIUM) [Concomitant]
  7. ENOXAPARIN SODIUM [Concomitant]
  8. VORICONAZOLE (VORICONAZOLE) [Concomitant]

REACTIONS (7)
  - ANAEMIA [None]
  - MALIGNANT NEOPLASM PROGRESSION [None]
  - PLASMACYTOMA [None]
  - PNEUMONIA [None]
  - PYREXIA [None]
  - STEM CELL TRANSPLANT [None]
  - THROMBOCYTOPENIA [None]
